FAERS Safety Report 7451554-2 (Version None)
Quarter: 2011Q2

REPORT INFORMATION
  Report Type: 
  Country: None (occurrence: None)
  Receive Date: 20110502
  Receipt Date: 20100320
  Transmission Date: 20111010
  Serious: No
  Sender: FDA-Public Use
  Company Number: US-ASTRAZENECA-2010SE12463

PATIENT
  Age: 30977 Day
  Sex: Female

DRUGS (1)
  1. NEXIUM [Suspect]
     Indication: DYSPEPSIA
     Route: 048
     Dates: start: 20100303

REACTIONS (2)
  - GLOSSODYNIA [None]
  - DRY MOUTH [None]
